FAERS Safety Report 6717797-8 (Version None)
Quarter: 2010Q2

REPORT INFORMATION
  Report Type: 
  Country: None (occurrence: None)
  Receive Date: 20100510
  Receipt Date: 20100429
  Transmission Date: 20101027
  Serious: Yes (Death, Other)
  Sender: FDA-Public Use
  Company Number: IN-PFIZER INC-2010055201

PATIENT

DRUGS (1)
  1. CYKLOKAPRON [Suspect]
     Indication: HAEMORRHAGE
     Dosage: 500 MG, UNK
     Route: 042

REACTIONS (3)
  - ABDOMINAL PAIN [None]
  - GANGRENE [None]
  - MESENTERIC OCCLUSION [None]
